FAERS Safety Report 17374613 (Version 4)
Quarter: 2020Q2

REPORT INFORMATION
  Report Type: Report from Study
  Country: CO (occurrence: CO)
  Receive Date: 20200206
  Receipt Date: 20200611
  Transmission Date: 20200713
  Serious: Yes (Hospitalization, Other)
  Sender: FDA-Public Use
  Company Number: PHHY2019CO107600

PATIENT
  Age: 55 Year
  Sex: Female
  Weight: 53 kg

DRUGS (8)
  1. FEMARA [Suspect]
     Active Substance: LETROZOLE
     Indication: BREAST CANCER
     Dosage: 2.5 MG, QD
     Route: 048
     Dates: start: 2019
  2. KISQALI [Suspect]
     Active Substance: RIBOCICLIB
     Indication: BREAST CANCER METASTATIC
     Dosage: 600 MG, QD (600 MG/3 OF 200MG)
     Route: 048
     Dates: start: 2019, end: 201912
  3. CALCIUM [Concomitant]
     Active Substance: CALCIUM
     Indication: PRODUCT USED FOR UNKNOWN INDICATION
     Dosage: UNK
     Route: 065
  4. ESOMEPRAZOLE. [Concomitant]
     Active Substance: ESOMEPRAZOLE MAGNESIUM
     Indication: GASTRITIS
     Dosage: UNK
     Route: 065
  5. KISQALI [Suspect]
     Active Substance: RIBOCICLIB
     Dosage: 2 DF, QD (400 MG/2 OF 200MG)
     Route: 048
     Dates: start: 201912
  6. KISQALI [Suspect]
     Active Substance: RIBOCICLIB
     Dosage: 600 MG, QD
     Route: 048
  7. KISQALI [Suspect]
     Active Substance: RIBOCICLIB
     Dosage: 400 MG, QD
     Route: 048
  8. VITAMIN D [Concomitant]
     Active Substance: VITAMIN D NOS
     Indication: PRODUCT USED FOR UNKNOWN INDICATION
     Dosage: UNK
     Route: 065

REACTIONS (27)
  - Nausea [Unknown]
  - Amnesia [Unknown]
  - Asthenia [Unknown]
  - Dysstasia [Unknown]
  - Underweight [Unknown]
  - Drug intolerance [Unknown]
  - Headache [Unknown]
  - Metastasis [Unknown]
  - Metastases to central nervous system [Unknown]
  - Malaise [Unknown]
  - Pain [Unknown]
  - Cough [Recovered/Resolved]
  - Malignant neoplasm progression [Unknown]
  - Metastases to lung [Unknown]
  - Bone pain [Unknown]
  - Depressed mood [Unknown]
  - Dysphagia [Unknown]
  - Feeling cold [Unknown]
  - Back pain [Unknown]
  - Bone disorder [Unknown]
  - Breast cancer [Unknown]
  - Pleuritic pain [Unknown]
  - Feeling abnormal [Unknown]
  - Mood swings [Unknown]
  - Aneurysm [Unknown]
  - Aphasia [Unknown]
  - Sleep disorder [Unknown]

NARRATIVE: CASE EVENT DATE: 20200124
